FAERS Safety Report 15497569 (Version 1)
Quarter: 2018Q4

REPORT INFORMATION
  Report Type: Spontaneous
  Country: US (occurrence: US)
  Receive Date: 20181005
  Receipt Date: 20181005
  Transmission Date: 20190205
  Serious: Yes (Other)
  Sender: FDA-Public Use
  Company Number: None

PATIENT
  Age: 35 Year
  Sex: Female
  Weight: 94.5 kg

DRUGS (3)
  1. ROBAXIN [Concomitant]
     Active Substance: METHOCARBAMOL
  2. CORTICOSTEROID INJECTION [Suspect]
     Active Substance: CORTICOSTEROID NOS
     Indication: PRODUCT USED FOR UNKNOWN INDICATION
  3. SYNTHROID [Suspect]
     Active Substance: LEVOTHYROXINE SODIUM

REACTIONS (2)
  - Weight increased [None]
  - Back pain [None]

NARRATIVE: CASE EVENT DATE: 20180310
